FAERS Safety Report 4535916-9 (Version None)
Quarter: 2004Q4

REPORT INFORMATION
  Report Type: 
  Country: None (occurrence: None)
  Receive Date: 20041223
  Receipt Date: 20041213
  Transmission Date: 20050328
  Serious: Yes (Hospitalization)
  Sender: FDA-Public Use
  Company Number: TR-JNJFOC-20041106171

PATIENT
  Sex: Female
  Weight: 60 kg

DRUGS (4)
  1. REMICADE [Suspect]
     Indication: CROHN'S DISEASE
     Dosage: 3 INFUSIONS
     Route: 042
  2. SALOFALK [Concomitant]
  3. IMURAN [Concomitant]
  4. BITERAL [Concomitant]

REACTIONS (2)
  - CHEST PAIN [None]
  - PULMONARY TUBERCULOSIS [None]
